FAERS Safety Report 19763182 (Version 2)
Quarter: 2021Q3

REPORT INFORMATION
  Report Type: Spontaneous
  Country: NL (occurrence: NL)
  Receive Date: 20210830
  Receipt Date: 20210909
  Transmission Date: 20211014
  Serious: Yes (Hospitalization)
  Sender: FDA-Public Use
  Company Number: NL-MYLANLABS-2021M1055916

PATIENT
  Age: 48 Year
  Sex: Male

DRUGS (6)
  1. ENALAPRIL [Suspect]
     Active Substance: ENALAPRIL
     Indication: HYPERTENSION
     Dosage: 1 DOSAGE FORM, QD (1 X PER DAY 1 TABLET)
     Dates: start: 20210312
  2. GREPID [Concomitant]
     Active Substance: CLOPIDOGREL BESILATE
     Dosage: TABLET, 75 MG (MILLIGRAM)
  3. PANTOPRAZOL                        /01263201/ [Concomitant]
     Active Substance: PANTOPRAZOLE
     Dosage: GASTRO?RESISTANT TABLET, 40 MG (MILLIGRAM)
  4. ATORVASTATINE                      /01326101/ [Concomitant]
     Active Substance: ATORVASTATIN
     Dosage: TABLET, 40 MG (MILLIGRAM)
  5. SOTALOL. [Concomitant]
     Active Substance: SOTALOL
     Dosage: TABLET, 80 MG (MILLIGRAM)
  6. ELIQUIS [Concomitant]
     Active Substance: APIXABAN
     Dosage: TABLET, 5 MG (MILLIGRAM)

REACTIONS (6)
  - Hypertension [Recovering/Resolving]
  - Seizure [Recovering/Resolving]
  - Foaming at mouth [Recovering/Resolving]
  - Syncope [Recovering/Resolving]
  - Headache [Recovering/Resolving]
  - Reversible cerebral vasoconstriction syndrome [Recovering/Resolving]

NARRATIVE: CASE EVENT DATE: 20210312
